FAERS Safety Report 9700655 (Version 2)
Quarter: 2013Q4

REPORT INFORMATION
  Report Type: Report from Study
  Country: CA (occurrence: CA)
  Receive Date: 20131121
  Receipt Date: 20131121
  Transmission Date: 20140711
  Serious: Yes (Hospitalization)
  Sender: FDA-Public Use
  Company Number: CA-JNJFOC-20131017994

PATIENT
  Age: 34 Year
  Sex: Female
  Weight: 80 kg

DRUGS (4)
  1. REMICADE [Suspect]
     Indication: CROHN^S DISEASE
     Route: 042
     Dates: start: 20131114
  2. REMICADE [Suspect]
     Indication: CROHN^S DISEASE
     Route: 042
     Dates: start: 20121026
  3. REACTINE [Concomitant]
     Indication: PREMEDICATION
     Dosage: 5 DAYS
     Route: 048
  4. TYLENOL [Concomitant]
     Indication: PREMEDICATION
     Dosage: 5 DAYS
     Route: 048

REACTIONS (9)
  - Abscess [Unknown]
  - Clostridium difficile infection [Unknown]
  - Vomiting [Unknown]
  - Nausea [Unknown]
  - Diarrhoea [Unknown]
  - Stress [Unknown]
  - Exposure during pregnancy [Unknown]
  - Chest discomfort [Recovered/Resolved]
  - Infusion related reaction [Recovered/Resolved]
